FAERS Safety Report 10490471 (Version 2)
Quarter: 2014Q4

REPORT INFORMATION
  Report Type: Spontaneous
  Country: US (occurrence: US)
  Receive Date: 20141002
  Receipt Date: 20141021
  Transmission Date: 20150528
  Serious: No
  Sender: FDA-Public Use
  Company Number: US-009507513-1409USA015285

PATIENT
  Age: 52 Year
  Sex: Female
  Weight: 62.13 kg

DRUGS (6)
  1. DULERA [Suspect]
     Active Substance: FORMOTEROL FUMARATE DIHYDRATE\MOMETASONE FUROATE
     Indication: ASTHMA
     Dosage: TOTAL DAILY DOSE: 4 PUFFS
     Route: 055
     Dates: start: 20140122, end: 20140123
  2. DULERA [Suspect]
     Active Substance: FORMOTEROL FUMARATE DIHYDRATE\MOMETASONE FUROATE
     Dosage: TOTAL DAILY DOSE: 4 PUFFS
     Route: 055
     Dates: start: 2014
  3. SINGULAIR [Concomitant]
     Active Substance: MONTELUKAST SODIUM
     Dosage: UNK
     Route: 048
  4. POTASSIUM CHLORIDE - USP [Concomitant]
     Active Substance: POTASSIUM CHLORIDE
     Dosage: UNK
     Route: 048
  5. CEFALINE (CEPHALEXIN) [Concomitant]
     Dosage: UNK
  6. DULERA [Suspect]
     Active Substance: FORMOTEROL FUMARATE DIHYDRATE\MOMETASONE FUROATE
     Dosage: TOTAL DAILY DOSE: 4 PUFFS
     Route: 055
     Dates: start: 2012

REACTIONS (3)
  - Dyspnoea [Not Recovered/Not Resolved]
  - Product container issue [Unknown]
  - Drug dose omission [Unknown]

NARRATIVE: CASE EVENT DATE: 20140122
